FAERS Safety Report 9437909 (Version 1)
Quarter: 2013Q3

REPORT INFORMATION
  Report Type: Spontaneous
  Country: US (occurrence: US)
  Receive Date: 20130802
  Receipt Date: 20130802
  Transmission Date: 20140515
  Serious: Yes (Hospitalization)
  Sender: FDA-Public Use
  Company Number: US-BRISTOL-MYERS SQUIBB COMPANY-18884387

PATIENT
  Age: 89 Year
  Sex: Female
  Weight: 72.56 kg

DRUGS (2)
  1. COUMADIN [Suspect]
     Dates: start: 201301
  2. XARELTO [Suspect]
     Indication: THROMBOSIS
     Dosage: TABS
     Route: 048
     Dates: start: 20130121, end: 20130121

REACTIONS (2)
  - Haemorrhage [Recovered/Resolved]
  - Thrombosis [Unknown]
